FAERS Safety Report 15869715 (Version 1)
Quarter: 2019Q1

REPORT INFORMATION
  Report Type: Spontaneous
  Country: US (occurrence: US)
  Receive Date: 20190125
  Receipt Date: 20190125
  Transmission Date: 20190417
  Serious: No
  Sender: FDA-Public Use
  Company Number: US-TARO-2018TAR00449

PATIENT
  Age: 41 Year
  Sex: Female

DRUGS (6)
  1. CLOTRIMAZOLE VAGINAL CREAM USP 1% 7 DAY [Suspect]
     Active Substance: CLOTRIMAZOLE
     Indication: URINARY TRACT INFECTION
  2. UNSPECIFIED IRON PILL [Concomitant]
  3. UNSPECIFIED SUPPLEMENTS [Concomitant]
  4. MULTIVITAMIN [Concomitant]
     Active Substance: VITAMINS
  5. UNSPECIFIED B12 [Concomitant]
  6. CLOTRIMAZOLE VAGINAL CREAM USP 1% 7 DAY [Suspect]
     Active Substance: CLOTRIMAZOLE
     Indication: VAGINAL INFECTION
     Dosage: UNK UNK, AS NEEDED
     Route: 067
     Dates: start: 20180608, end: 20180608

REACTIONS (6)
  - Drug ineffective for unapproved indication [Recovered/Resolved]
  - Vaginal infection [Not Recovered/Not Resolved]
  - Sensation of foreign body [Unknown]
  - Product quality issue [Not Recovered/Not Resolved]
  - Urinary tract infection [Not Recovered/Not Resolved]
  - Inappropriate schedule of product administration [Recovered/Resolved]

NARRATIVE: CASE EVENT DATE: 201806
